FAERS Safety Report 24754787 (Version 1)
Quarter: 2024Q4

REPORT INFORMATION
  Report Type: Spontaneous
  Country: AR (occurrence: AR)
  Receive Date: 20241219
  Receipt Date: 20241219
  Transmission Date: 20250115
  Serious: Yes (Other)
  Sender: BOEHRINGER INGELHEIM
  Company Number: AR-BoehringerIngelheim-2024-BI-069489

PATIENT
  Age: 56 Year
  Sex: Male

DRUGS (1)
  1. JARDIANCE [Suspect]
     Active Substance: EMPAGLIFLOZIN
     Indication: Product used for unknown indication
     Dates: start: 20221118

REACTIONS (3)
  - Implantable defibrillator insertion [Unknown]
  - Dengue fever [Unknown]
  - Dehydration [Unknown]

NARRATIVE: CASE EVENT DATE: 20230217
